FAERS Safety Report 4452059-3 (Version None)
Quarter: 2004Q3

REPORT INFORMATION
  Report Type: 
  Country: None (occurrence: None)
  Receive Date: 20040915
  Receipt Date: 20040915
  Transmission Date: 20050211
  Serious: Yes (Life-Threatening, Hospitalization)
  Sender: FDA-Public Use
  Company Number: None

PATIENT
  Age: 66 Year
  Sex: Male
  Weight: 122.4712 kg

DRUGS (1)
  1. COUMADIN [Suspect]
     Indication: SMALL INTESTINAL OBSTRUCTION
     Dosage: 7.5 MG  QHS  PO
     Route: 048
     Dates: start: 20040905, end: 20040907

REACTIONS (1)
  - INTERNATIONAL NORMALISED RATIO INCREASED [None]
